FAERS Safety Report 17409568 (Version 1)
Quarter: 2020Q1

REPORT INFORMATION
  Report Type: Spontaneous
  Country: CA (occurrence: CA)
  Receive Date: 20200212
  Receipt Date: 20200212
  Transmission Date: 20200409
  Serious: Yes (Other)
  Sender: FDA-Public Use
  Company Number: CA-TEVA-2020-CA-1183172

PATIENT
  Age: 15 Year
  Sex: Female
  Weight: 50 kg

DRUGS (14)
  1. VINCRISTINE [Suspect]
     Active Substance: VINCRISTINE
     Indication: HODGKIN^S DISEASE
     Route: 042
  2. VINORELBINE TARTRATE. [Concomitant]
     Active Substance: VINORELBINE TARTRATE
  3. MELPHALAN. [Concomitant]
     Active Substance: MELPHALAN
  4. BLEOMYCIN SULFATE [Concomitant]
     Active Substance: BLEOMYCIN SULFATE
  5. CYCLOPHOSPHAMIDE. [Concomitant]
     Active Substance: CYCLOPHOSPHAMIDE
  6. DOXORUBICIN /00330902/ [Concomitant]
     Active Substance: DOXORUBICIN
  7. IFOSFAMIDE. [Concomitant]
     Active Substance: IFOSFAMIDE
  8. BUSULFAN. [Concomitant]
     Active Substance: BUSULFAN
  9. ETOPOSIDE. [Concomitant]
     Active Substance: ETOPOSIDE
  10. PREDNISONE. [Concomitant]
     Active Substance: PREDNISONE
  11. CARBOPLATIN. [Concomitant]
     Active Substance: CARBOPLATIN
  12. DEXAMETHASONE. [Concomitant]
     Active Substance: DEXAMETHASONE
  13. ADCETRIS [Suspect]
     Active Substance: BRENTUXIMAB VEDOTIN
     Indication: HODGKIN^S DISEASE
     Route: 042
  14. GEMCITABINE. [Concomitant]
     Active Substance: GEMCITABINE

REACTIONS (3)
  - Peripheral sensorimotor neuropathy [Unknown]
  - Off label use [Unknown]
  - Arthralgia [Unknown]
